FAERS Safety Report 19166935 (Version 1)
Quarter: 2021Q2

REPORT INFORMATION
  Report Type: Spontaneous
  Country: JP (occurrence: JP)
  Receive Date: 20210421
  Receipt Date: 20210421
  Transmission Date: 20210717
  Serious: Yes (Hospitalization)
  Sender: FDA-Public Use
  Company Number: JP-JNJFOC-20210438136

PATIENT
  Age: 60 Year
  Sex: Male

DRUGS (20)
  1. TIVICAY [Concomitant]
     Active Substance: DOLUTEGRAVIR SODIUM
     Indication: HIV INFECTION
     Route: 048
     Dates: start: 20201211
  2. OMEPRAL [OMEPRAZOLE] [Concomitant]
     Active Substance: OMEPRAZOLE
     Dosage: DOSE UNKNOWN
     Route: 065
     Dates: start: 20160401, end: 20170604
  3. DESCOVY [Concomitant]
     Active Substance: EMTRICITABINE\TENOFOVIR ALAFENAMIDE FUMARATE
     Indication: HIV INFECTION
     Route: 048
     Dates: start: 20170307, end: 20201210
  4. ATORVASTATIN [Concomitant]
     Active Substance: ATORVASTATIN
     Indication: DYSLIPIDAEMIA
     Dosage: DOSE UNKNOWN
     Route: 048
     Dates: start: 20161004
  5. VITAMEDIN [BENFOTIAMINE;CYANOCOBALAMIN;PYRIDOXINE HYDROCHLORIDE] [Concomitant]
     Indication: PROPHYLAXIS
     Dosage: DOSE UNKNOWN
     Route: 065
     Dates: start: 20170110
  6. FRANDOL S [Concomitant]
     Active Substance: ISOSORBIDE DINITRATE
     Dosage: DOSE UNKNOWN
     Route: 062
     Dates: start: 20160401, end: 20170605
  7. VITAMINS NOS [Concomitant]
     Active Substance: VITAMINS
     Dosage: DOSE UNKNOWN
     Route: 048
     Dates: start: 20160401, end: 20170409
  8. COIX SEED EXTRACT [Concomitant]
     Dosage: DOSE UNKNOWN
     Route: 048
     Dates: start: 20180508
  9. CELSENTRI [Concomitant]
     Active Substance: MARAVIROC
     Indication: HIV INFECTION
     Route: 048
     Dates: start: 20170307, end: 20201210
  10. LUPRAC [Concomitant]
     Active Substance: TORSEMIDE
     Dosage: DOSE UNKNOWN
     Route: 048
     Dates: start: 20160401, end: 20190312
  11. PIFELTRO [Concomitant]
     Active Substance: DORAVIRINE
     Indication: HIV INFECTION
     Route: 048
     Dates: start: 20201211
  12. FLUITRAN [TRICHLORMETHIAZIDE] [Concomitant]
     Active Substance: TRICHLORMETHIAZIDE
     Dosage: DOSE UNKNOWN
     Route: 048
     Dates: start: 20160401
  13. ALLEGRA [Concomitant]
     Active Substance: FEXOFENADINE HYDROCHLORIDE
     Dosage: DOSE UNKNOWN
     Route: 048
     Dates: start: 20180306
  14. CELECOX [Concomitant]
     Active Substance: CELECOXIB
     Dosage: DOSE UNKNOWN
     Route: 048
     Dates: start: 20170401
  15. INTELENCE [Suspect]
     Active Substance: ETRAVIRINE
     Indication: HIV INFECTION
     Route: 048
     Dates: start: 20170307
  16. ADALAT CC [Concomitant]
     Active Substance: NIFEDIPINE
     Dosage: DOSE UNKNOWN
     Route: 048
     Dates: start: 20160401
  17. CARDENALIN [Concomitant]
     Active Substance: DOXAZOSIN MESYLATE
     Dosage: DOSE UNKNOWN
     Route: 048
     Dates: start: 20160401
  18. AZILVA [Concomitant]
     Active Substance: AZILSARTAN KAMEDOXOMIL
     Dosage: DOSE UNKNOWN
     Route: 048
     Dates: start: 20160401
  19. POLARAMINE [Concomitant]
     Active Substance: DEXCHLORPHENIRAMINE MALEATE
     Indication: PRURITUS
     Dosage: DOSE UNKNOWN
     Route: 065
     Dates: start: 20160401
  20. ADVATE [Concomitant]
     Active Substance: ANTIHEMOPHILIC FACTOR, HUMAN RECOMBINANT
     Dosage: DOSE UNKNOWN
     Route: 065
     Dates: start: 20160510

REACTIONS (1)
  - Nasal sinus cancer [Not Recovered/Not Resolved]

NARRATIVE: CASE EVENT DATE: 202008
